FAERS Safety Report 11524453 (Version 2)
Quarter: 2015Q4

REPORT INFORMATION
  Report Type: Report from Study
  Country: SK (occurrence: SK)
  Receive Date: 20150918
  Receipt Date: 20151112
  Transmission Date: 20160304
  Serious: Yes (Hospitalization)
  Sender: FDA-Public Use
  Company Number: SK-TEVA-594571ISR

PATIENT
  Age: 69 Year
  Sex: Male
  Weight: 99 kg

DRUGS (12)
  1. ATORIS [Concomitant]
     Active Substance: ATORVASTATIN CALCIUM
     Indication: HYPERLIPIDAEMIA
     Dates: start: 20140303, end: 20150729
  2. RIVOCOR [Concomitant]
     Indication: HYPERTENSION
     Dates: start: 20150528, end: 20150729
  3. CORDARONE [Concomitant]
     Active Substance: AMIODARONE HYDROCHLORIDE
     Indication: ARRHYTHMIA
     Dates: start: 20150528, end: 20150729
  4. TRITACE [Concomitant]
     Active Substance: RAMIPRIL
     Indication: HYPERTENSION
     Dates: start: 20140303, end: 20150729
  5. METHOTREXATE [Suspect]
     Active Substance: METHOTREXATE
     Indication: RHEUMATOID ARTHRITIS
     Route: 048
     Dates: start: 20111024, end: 20150727
  6. ZARACET [Concomitant]
     Indication: RHEUMATOID ARTHRITIS
     Dates: start: 20140814, end: 201507
  7. ANOPYRIN [Concomitant]
     Active Substance: ASPIRIN
     Indication: CORONARY ARTERY THROMBOSIS
     Dates: start: 20060521, end: 20150729
  8. METFOGAMMA [Concomitant]
     Indication: DIABETES MELLITUS
     Dates: start: 20150706, end: 20150729
  9. ACIDUM FOUCUM [Concomitant]
     Indication: RHEUMATOID ARTHRITIS
     Dates: start: 20111024, end: 20150729
  10. FURON [Concomitant]
     Active Substance: FUROSEMIDE
     Indication: MYOCARDIAL ISCHAEMIA
     Dates: start: 20140303, end: 20150729
  11. NOLPAZA [Concomitant]
     Active Substance: PANTOPRAZOLE SODIUM
     Indication: PROPHYLAXIS AGAINST GASTROINTESTINAL ULCER
     Dates: start: 20140303, end: 20150729
  12. ETANERCEPT [Suspect]
     Active Substance: ETANERCEPT
     Indication: RHEUMATOID ARTHRITIS
     Route: 058
     Dates: start: 20150204, end: 20150729

REACTIONS (2)
  - Cholecystitis infective [Recovered/Resolved]
  - Gallbladder perforation [Recovered/Resolved]

NARRATIVE: CASE EVENT DATE: 20150729
